FAERS Safety Report 4986800-8 (Version None)
Quarter: 2006Q2

REPORT INFORMATION
  Report Type: 
  Country: None (occurrence: None)
  Receive Date: 20060428
  Receipt Date: 20060104
  Transmission Date: 20061013
  Serious: Yes (Death)
  Sender: FDA-Public Use
  Company Number: US-MERCK-0601USA00370

PATIENT
  Age: 73 Year
  Sex: Male
  Weight: 105 kg

DRUGS (5)
  1. VIOXX [Suspect]
     Indication: SHOULDER PAIN
     Route: 048
     Dates: start: 20020506, end: 20040101
  2. DETROL [Concomitant]
     Indication: PROSTATIC DISORDER
     Route: 065
  3. CARDURA [Concomitant]
     Indication: HYPERTENSION
     Route: 065
     Dates: start: 19980101
  4. ZOLOFT [Concomitant]
     Indication: DEPRESSION
     Route: 065
     Dates: start: 20001001
  5. CEPHALEXIN [Concomitant]
     Route: 065

REACTIONS (1)
  - MYOCARDIAL INFARCTION [None]
